FAERS Safety Report 4777534-3 (Version None)
Quarter: 2005Q3

REPORT INFORMATION
  Report Type: 
  Country: None (occurrence: None)
  Receive Date: 20050923
  Receipt Date: 20050128
  Transmission Date: 20060218
  Serious: Yes (Hospitalization)
  Sender: FDA-Public Use
  Company Number: GBWYE383431JAN05

PATIENT
  Sex: Male

DRUGS (3)
  1. ENBREL [Suspect]
     Indication: RHEUMATOID ARTHRITIS
     Dosage: UNKNOWN
     Route: 058
     Dates: start: 20040813, end: 20041118
  2. METHOTREXATE [Concomitant]
     Dates: start: 19980701, end: 20041201
  3. FOLIC ACID [Concomitant]
     Dates: start: 19980701, end: 20041201

REACTIONS (2)
  - ABSCESS SOFT TISSUE [None]
  - SEPTIC ARTHRITIS STAPHYLOCOCCAL [None]
